FAERS Safety Report 19816955 (Version 6)
Quarter: 2021Q4

REPORT INFORMATION
  Report Type: Report from Study
  Country: DK (occurrence: DK)
  Receive Date: 20210910
  Receipt Date: 20211101
  Transmission Date: 20220304
  Serious: Yes (Hospitalization, Other)
  Sender: FDA-Public Use
  Company Number: DK-SA-SAC20210908000504

PATIENT
  Age: 5 Year
  Sex: Male
  Weight: 21.8 kg

DRUGS (57)
  1. ISATUXIMAB [Suspect]
     Active Substance: ISATUXIMAB
     Indication: B-cell type acute leukaemia
     Dosage: 20 MG/KG, QW
     Route: 042
     Dates: start: 20210830, end: 20210830
  2. ISATUXIMAB [Suspect]
     Active Substance: ISATUXIMAB
     Dosage: 20 MG/KG, QW
     Route: 042
     Dates: start: 20210816, end: 20210816
  3. DEXAMETHASONE [Suspect]
     Active Substance: DEXAMETHASONE
     Indication: B-cell type acute leukaemia
     Dosage: 10 MG/M2, ON DAYS ?3, ?2, ?1, 1, 8, 15 TO 19, 22, AND 29 TO 33
     Route: 048
     Dates: start: 20210830
  4. DEXAMETHASONE [Suspect]
     Active Substance: DEXAMETHASONE
     Dosage: 10 MG/M2, ON DAYS ?3, ?2, ?1, 1, 8, 15 TO 19, 22, AND 29 TO 33
  5. MITOXANTRONE [Suspect]
     Active Substance: MITOXANTRONE HYDROCHLORIDE
     Indication: B-cell type acute leukaemia
     Dosage: 10 MG/M2, ON DAYS 8 AND 9
     Route: 042
     Dates: start: 20210823, end: 20210823
  6. MITOXANTRONE [Suspect]
     Active Substance: MITOXANTRONE HYDROCHLORIDE
     Dosage: 10 MG/M2, ON DAYS 8 AND 9
     Route: 042
  7. VINCRISTINE SULFATE [Suspect]
     Active Substance: VINCRISTINE SULFATE
     Indication: B-cell type acute leukaemia
     Dosage: 1.5 MG/M2, ON DAYS 10, 17, 24, AND 31 DURING INDUCTION PERIOD, DAY 38 DURING CONSOLIDATION PERIOD
     Route: 042
     Dates: start: 20210901, end: 20210901
  8. VINCRISTINE SULFATE [Suspect]
     Active Substance: VINCRISTINE SULFATE
     Dosage: 1.5 MG/M2, ON DAYS 10, 17, 24, AND 31 DURING INDUCTION PERIOD, DAY 38 DURING CONSOLIDATION PERIOD
     Route: 042
  9. ASPARAGINASE [Suspect]
     Active Substance: ASPARAGINASE
     Indication: B-cell type acute leukaemia
     Dosage: 25000 IU/M? DAYS 10 AND 24 DURING INDUCTION PERIOD, DAY 44 DURING CONSOLIDATION PERIOD
     Route: 042
     Dates: start: 20210901, end: 20210901
  10. ASPARAGINASE [Suspect]
     Active Substance: ASPARAGINASE
     Dosage: 1000 IU/M? DAYS 10 AND 24 DURING INDUCTION PERIOD, DAY 44 DURING CONSOLIDATION PERIOD
     Route: 042
  11. ACETAMINOPHEN [Concomitant]
     Active Substance: ACETAMINOPHEN
     Indication: Prophylaxis
     Dosage: TOTAL DAILY DOSE: 250 MG
     Route: 048
     Dates: start: 20210823, end: 20210823
  12. ACETAMINOPHEN [Concomitant]
     Active Substance: ACETAMINOPHEN
     Dosage: TOTAL DAILY DOSE: 250 MG
     Route: 048
     Dates: start: 20210830, end: 20210830
  13. ACETAMINOPHEN [Concomitant]
     Active Substance: ACETAMINOPHEN
     Dosage: TOTAL DAILY DOSE: 250 MG
     Route: 048
     Dates: start: 20210906, end: 20210906
  14. CLEMASTINE [Concomitant]
     Active Substance: CLEMASTINE
     Indication: Prophylaxis
     Dosage: TOTAL DAILY DOSE: 0.45 MG
     Route: 042
     Dates: start: 20210823, end: 20210823
  15. CLEMASTINE [Concomitant]
     Active Substance: CLEMASTINE
     Dosage: TOTAL DAILY DOSE: 0.45 MG
     Route: 042
     Dates: start: 20210830, end: 20210830
  16. CLEMASTINE [Concomitant]
     Active Substance: CLEMASTINE
     Dosage: UNK
     Route: 040
     Dates: start: 20210816
  17. CLEMASTINE [Concomitant]
     Active Substance: CLEMASTINE
     Dosage: TOTAL DAILY DOSE: 0.45 MG
     Route: 042
     Dates: start: 20210906, end: 20210906
  18. MONTELUKAST [Concomitant]
     Active Substance: MONTELUKAST SODIUM
     Indication: Prophylaxis
     Dosage: TOTAL DAILY DOSE: 4 MG
     Route: 048
     Dates: start: 20210823, end: 20210823
  19. MONTELUKAST [Concomitant]
     Active Substance: MONTELUKAST SODIUM
     Dosage: TOTAL DAILY DOSE: 4 MG
     Route: 048
     Dates: start: 20210830, end: 20210830
  20. MONTELUKAST [Concomitant]
     Active Substance: MONTELUKAST SODIUM
     Dosage: UNK
     Route: 048
     Dates: start: 20210816
  21. MONTELUKAST [Concomitant]
     Active Substance: MONTELUKAST SODIUM
     Dosage: TOTAL DAILY DOSE: 4 MG
     Route: 048
     Dates: start: 20210906, end: 20210906
  22. METHOTREXATE [Concomitant]
     Active Substance: METHOTREXATE
     Indication: Prophylaxis
     Dosage: UNK
     Route: 065
     Dates: start: 20210823, end: 20210823
  23. METHOTREXATE [Concomitant]
     Active Substance: METHOTREXATE
     Dosage: UNK
     Route: 065
     Dates: start: 20210830, end: 20210830
  24. CYTARABINE [Concomitant]
     Active Substance: CYTARABINE
     Indication: Prophylaxis
     Dosage: UNK
     Route: 065
     Dates: start: 20210823, end: 20210823
  25. CYTARABINE [Concomitant]
     Active Substance: CYTARABINE
     Dosage: UNK
     Route: 065
     Dates: start: 20210830, end: 20210830
  26. SOLU-MEDROL [Concomitant]
     Active Substance: METHYLPREDNISOLONE SODIUM SUCCINATE
     Indication: Prophylaxis
     Dosage: UNK
     Route: 065
     Dates: start: 20210823, end: 20210823
  27. SOLU-MEDROL [Concomitant]
     Active Substance: METHYLPREDNISOLONE SODIUM SUCCINATE
     Dosage: UNK
     Route: 065
     Dates: start: 20210830, end: 20210830
  28. VOGALENE [Concomitant]
     Active Substance: METOPIMAZINE
     Dosage: UNK
     Route: 048
     Dates: start: 20210811
  29. JUNIOR PAIN RELIEF [Concomitant]
     Active Substance: ACETAMINOPHEN
     Dosage: UNK
     Route: 048
     Dates: start: 20210811
  30. MICROLAX [SODIUM CITRATE;SODIUM LAURYL SULFOACETATE] [Concomitant]
     Dosage: UNK
     Route: 054
     Dates: start: 20210811
  31. SODIUM PICOSULFATE [Concomitant]
     Active Substance: SODIUM PICOSULFATE
     Dosage: UNK
     Route: 048
     Dates: start: 20210811
  32. UNIKALK SILVER [Concomitant]
     Indication: Prophylaxis
     Dosage: UNK
     Route: 048
     Dates: start: 20210812
  33. CASPOFUNGIN [Concomitant]
     Active Substance: CASPOFUNGIN
     Indication: Prophylaxis
     Dosage: UNK
     Route: 042
     Dates: start: 20210812, end: 20210925
  34. VITAMINS NOS [Concomitant]
     Active Substance: VITAMINS
     Indication: Prophylaxis
     Dosage: UNK
     Route: 048
     Dates: start: 20210812
  35. FUROSEMIDE [Concomitant]
     Active Substance: FUROSEMIDE
     Dosage: UNK
     Route: 042
     Dates: start: 20210814
  36. PIPERACILLIN SODIUM\TAZOBACTAM SODIUM [Concomitant]
     Active Substance: PIPERACILLIN SODIUM\TAZOBACTAM SODIUM
     Dosage: UNK
     Route: 042
     Dates: start: 20210818, end: 20210821
  37. PIPERACILLIN SODIUM\TAZOBACTAM SODIUM [Concomitant]
     Active Substance: PIPERACILLIN SODIUM\TAZOBACTAM SODIUM
     Dosage: UNK
     Route: 042
     Dates: start: 20210824, end: 20210827
  38. PIPERACILLIN SODIUM\TAZOBACTAM SODIUM [Concomitant]
     Active Substance: PIPERACILLIN SODIUM\TAZOBACTAM SODIUM
     Dosage: UNK
     Route: 042
     Dates: start: 20210902, end: 20210904
  39. PALONOSETRON [Concomitant]
     Active Substance: PALONOSETRON
     Indication: Prophylaxis
     Dosage: UNK
     Route: 042
     Dates: start: 20210823
  40. SULFAMETHOXAZOLE\TRIMETHOPRIM [Concomitant]
     Active Substance: SULFAMETHOXAZOLE\TRIMETHOPRIM
     Indication: Prophylaxis
     Dosage: UNK
     Route: 048
     Dates: start: 20210814
  41. ONDANSETRON [Concomitant]
     Active Substance: ONDANSETRON
     Dosage: UNK
     Route: 048
     Dates: start: 20210816
  42. LACROFARM [Concomitant]
     Dosage: UNK
     Route: 048
     Dates: start: 20210811
  43. CLONIDINE [Concomitant]
     Active Substance: CLONIDINE
     Indication: Prophylaxis
     Dosage: UNK
     Route: 042
     Dates: start: 20210830
  44. APREPITANT [Concomitant]
     Active Substance: APREPITANT
     Dosage: UNK
     Route: 048
     Dates: start: 20210830
  45. CIPROFLOXACIN [Concomitant]
     Active Substance: CIPROFLOXACIN
     Dosage: UNK
     Route: 048
     Dates: start: 20210903, end: 20210907
  46. CIPROFLOXACIN [Concomitant]
     Active Substance: CIPROFLOXACIN
     Dosage: UNK
     Route: 042
     Dates: start: 20210907, end: 20210922
  47. ADDIPHOS [POTASSIUM HYDROXIDE;POTASSIUM PHOSPHATE DIBASIC;SODIUM PHOSP [Concomitant]
     Dosage: UNK
     Route: 042
     Dates: start: 20210903, end: 20210903
  48. TOBRAMYCIN [Concomitant]
     Active Substance: TOBRAMYCIN
     Dosage: UNK
     Route: 042
     Dates: start: 20210904, end: 20210905
  49. SODIUM PHOSPHATE [Concomitant]
     Active Substance: SODIUM PHOSPHATE
     Dosage: UNK
     Route: 048
     Dates: start: 20210904, end: 20210920
  50. MEROPENEM [Concomitant]
     Active Substance: MEROPENEM
     Dosage: UNK
     Route: 042
     Dates: start: 20210905
  51. ESOMEPRAZOLE [Concomitant]
     Active Substance: ESOMEPRAZOLE
     Dosage: UNK
     Route: 042
     Dates: start: 20210905
  52. MORPHINE [Concomitant]
     Active Substance: MORPHINE
     Dosage: UNK
     Route: 048
     Dates: start: 20210905
  53. HUMAN RED BLOOD CELL [Concomitant]
     Active Substance: HUMAN RED BLOOD CELL
     Dosage: UNK
     Route: 042
     Dates: start: 20210819, end: 20210819
  54. HUMAN RED BLOOD CELL [Concomitant]
     Active Substance: HUMAN RED BLOOD CELL
     Dosage: UNK
     Route: 042
     Dates: start: 20210830, end: 20210830
  55. HUMAN RED BLOOD CELL [Concomitant]
     Active Substance: HUMAN RED BLOOD CELL
     Dosage: UNK
     Route: 042
     Dates: start: 20210905, end: 20210905
  56. PLATELETS [Concomitant]
     Active Substance: HUMAN PLATELET, ALLOGENIC
     Dosage: UNK
     Route: 042
     Dates: start: 20210823, end: 20210823
  57. PLATELETS [Concomitant]
     Active Substance: HUMAN PLATELET, ALLOGENIC
     Dosage: UNK
     Route: 042
     Dates: start: 20210905, end: 20210905

REACTIONS (2)
  - Bacterial sepsis [Recovered/Resolved]
  - Appendicitis [Recovered/Resolved]

NARRATIVE: CASE EVENT DATE: 20210902
